FAERS Safety Report 10135654 (Version 2)
Quarter: 2014Q2

REPORT INFORMATION
  Report Type: Report from Study
  Country: RU (occurrence: RU)
  Receive Date: 20140428
  Receipt Date: 20140515
  Transmission Date: 20141212
  Serious: Yes (Other)
  Sender: FDA-Public Use
  Company Number: PHHO2014RU006075

PATIENT
  Age: 30 Year
  Sex: Male

DRUGS (1)
  1. ACLASTA [Suspect]
     Indication: OSTEOGENESIS IMPERFECTA
     Dosage: UNK
     Route: 042
     Dates: start: 2013

REACTIONS (1)
  - Lower limb fracture [Not Recovered/Not Resolved]
